FAERS Safety Report 23488032 (Version 1)
Quarter: 2024Q1

REPORT INFORMATION
  Report Type: Spontaneous
  Country: US (occurrence: US)
  Receive Date: 20240206
  Receipt Date: 20240206
  Transmission Date: 20240409
  Serious: Yes (Other)
  Sender: FDA-Public Use
  Company Number: US-SEATTLE GENETICS-2024SGN01079

PATIENT
  Sex: Female

DRUGS (1)
  1. TIVDAK [Suspect]
     Active Substance: TISOTUMAB VEDOTIN-TFTV
     Indication: Product used for unknown indication
     Dosage: UNK
     Route: 065
     Dates: start: 2022

REACTIONS (6)
  - Malignant neoplasm progression [Unknown]
  - Corneal disorder [Unknown]
  - Eye inflammation [Unknown]
  - Eyelid disorder [Unknown]
  - Corrective lens user [Unknown]
  - Corneal scar [Unknown]
